FAERS Safety Report 6646255-4 (Version None)
Quarter: 2010Q1

REPORT INFORMATION
  Report Type: 
  Country: None (occurrence: None)
  Receive Date: 20100323
  Receipt Date: 20100222
  Transmission Date: 20100710
  Serious: Yes (Other)
  Sender: FDA-Public Use
  Company Number: CA-BAYER-200822272NA

PATIENT
  Age: 53 Year
  Sex: Male
  Weight: 78 kg

DRUGS (3)
  1. BETASERON [Suspect]
     Indication: RELAPSING-REMITTING MULTIPLE SCLEROSIS
     Dosage: TOTAL DAILY DOSE: 8 MIU
     Route: 058
     Dates: start: 19960219, end: 20090501
  2. BETASERON [Suspect]
     Route: 058
     Dates: end: 20091001
  3. BETASERON [Suspect]
     Dosage: TOTAL DAILY DOSE: 9.6 MIU
     Route: 058
     Dates: start: 20100101

REACTIONS (12)
  - ABDOMINAL PAIN [None]
  - ABDOMINAL PAIN UPPER [None]
  - ARTHRALGIA [None]
  - ARTHRITIS [None]
  - BACK PAIN [None]
  - BLOOD BILIRUBIN INCREASED [None]
  - CATARACT [None]
  - FEELING ABNORMAL [None]
  - HEPATIC STEATOSIS [None]
  - MYALGIA [None]
  - PANCREAS LIPOMATOSIS [None]
  - RENAL CYST [None]
